FAERS Safety Report 6504241-9 (Version None)
Quarter: 2009Q4

REPORT INFORMATION
  Report Type: 
  Country: None (occurrence: None)
  Receive Date: 20091215
  Receipt Date: 20091118
  Transmission Date: 20100525
  Serious: Yes (Other)
  Sender: FDA-Public Use
  Company Number: 2009SP034663

PATIENT
  Age: 60 Year
  Sex: Female
  Weight: 53 kg

DRUGS (5)
  1. MUSCULAX (VECURONIUM BROMIDE) (VECURONIUM BROMIDE) [Suspect]
     Indication: NEUROMUSCULAR BLOCKING THERAPY
     Dosage: ; IV
     Route: 042
  2. HYDROCORTISONE [Suspect]
     Indication: MAINTENANCE OF ANAESTHESIA
  3. FENTANIL [Concomitant]
  4. PROPOFOL [Suspect]
  5. SUCCINYL CHOLINE [Concomitant]

REACTIONS (2)
  - CYANOSIS [None]
  - HYPERTHERMIA MALIGNANT [None]
